FAERS Safety Report 4356658-9 (Version None)
Quarter: 2004Q2

REPORT INFORMATION
  Report Type: 
  Country: None (occurrence: None)
  Receive Date: 20040507
  Receipt Date: 20040426
  Transmission Date: 20050107
  Serious: Yes (Hospitalization)
  Sender: FDA-Public Use
  Company Number: 2004211340FR

PATIENT
  Age: 68 Year
  Sex: Male

DRUGS (10)
  1. DOXORUBICIN HCL [Suspect]
     Dosage: 10 MG,  IV
     Route: 042
     Dates: start: 20040220, end: 20040220
  2. ONCOVIN [Suspect]
     Dosage: IV
     Route: 042
     Dates: start: 20040220, end: 20040220
  3. UROMITEXAN [Concomitant]
  4. MABTHERA (RITUXIMAB) [Concomitant]
  5. SOLU-MEDROL [Concomitant]
  6. MOPRAL [Concomitant]
  7. GLUCOPHAGE [Concomitant]
  8. GAVISCON [Concomitant]
  9. BACTRIM [Concomitant]
  10. SPECIAFOLDINE [Concomitant]

REACTIONS (3)
  - BUNDLE BRANCH BLOCK BILATERAL [None]
  - CORONARY ARTERY STENOSIS [None]
  - MYOCARDIAL INFARCTION [None]
